FAERS Safety Report 11855315 (Version 3)
Quarter: 2016Q3

REPORT INFORMATION
  Report Type: Spontaneous
  Country: JP (occurrence: JP)
  Receive Date: 20151221
  Receipt Date: 20160926
  Transmission Date: 20161109
  Serious: Yes (Hospitalization, Other)
  Sender: FDA-Public Use
  Company Number: PHJP2015JP023071

PATIENT
  Age: 22 Year
  Sex: Male

DRUGS (1)
  1. TEGRETOL [Suspect]
     Active Substance: CARBAMAZEPINE
     Indication: EPILEPSY
     Dosage: UNK
     Route: 048

REACTIONS (7)
  - Erythema [Unknown]
  - Pleurisy [Unknown]
  - Pleural effusion [Unknown]
  - Pyrexia [Unknown]
  - Chest pain [Unknown]
  - Systemic lupus erythematosus [Recovering/Resolving]
  - Pancytopenia [Unknown]
